FAERS Safety Report 11266336 (Version 2)
Quarter: 2015Q3

REPORT INFORMATION
  Report Type: Spontaneous
  Country: US (occurrence: US)
  Receive Date: 20150713
  Receipt Date: 20150715
  Transmission Date: 20151125
  Serious: Yes (Other)
  Sender: FDA-Public Use
  Company Number: US-TEVA-577189USA

PATIENT
  Sex: Female

DRUGS (7)
  1. VALIUM [Concomitant]
     Active Substance: DIAZEPAM
     Dosage: UP TO THREE TIMES A DAY
     Route: 048
  2. CYCLOBENZAPRINE [Concomitant]
     Active Substance: CYCLOBENZAPRINE
     Dosage: UP TO THREE TIMES A DAY
     Route: 048
  3. CAMILA [Suspect]
     Active Substance: NORETHINDRONE
     Indication: ORAL CONTRACEPTION
     Route: 048
     Dates: end: 201507
  4. METHYLPHENIDATE. [Concomitant]
     Active Substance: METHYLPHENIDATE
     Dosage: UP TO 4 TO 5 TIMES A DAY
     Route: 048
  5. CHANTIX [Concomitant]
     Active Substance: VARENICLINE TARTRATE
     Indication: SMOKING CESSATION THERAPY
  6. OXYCODONE [Concomitant]
     Active Substance: OXYCODONE
     Dosage: 40 MILLIGRAM DAILY;
  7. MULTIVITAMIN [Concomitant]
     Active Substance: VITAMINS

REACTIONS (13)
  - Venous thrombosis limb [Unknown]
  - Thrombosis [Unknown]
  - Product identification number issue [Unknown]
  - Muscular weakness [Unknown]
  - Thyroid mass [Unknown]
  - Anxiety [Unknown]
  - Haemorrhage [Unknown]
  - Coagulation time prolonged [Unknown]
  - Contusion [Unknown]
  - Feeling abnormal [Unknown]
  - Victim of abuse [Unknown]
  - Palpitations [Unknown]
  - Blood viscosity abnormal [Unknown]
